APPROVED DRUG PRODUCT: LEVETIRACETAM
Active Ingredient: LEVETIRACETAM
Strength: 1GM
Dosage Form/Route: TABLET;ORAL
Application: A217878 | Product #004
Applicant: GRANULES INDIA LTD
Approved: Jun 13, 2023 | RLD: No | RS: No | Type: DISCN